FAERS Safety Report 23664312 (Version 1)
Quarter: 2024Q1

REPORT INFORMATION
  Report Type: Spontaneous
  Country: NL (occurrence: NL)
  Receive Date: 20240322
  Receipt Date: 20240322
  Transmission Date: 20240410
  Serious: Yes (Other)
  Sender: FDA-Public Use
  Company Number: None

PATIENT
  Age: 69 Year
  Sex: Male
  Weight: 88 kg

DRUGS (2)
  1. SIMVASTATIN [Suspect]
     Active Substance: SIMVASTATIN
     Indication: Hypercholesterolaemia
     Dosage: 1D1, TABLET FO  / BRAND NAME NOT SPECIFIED
     Route: 065
     Dates: start: 20240102, end: 20240212
  2. CLOPIDOGREL [Concomitant]
     Active Substance: CLOPIDOGREL BISULFATE
     Indication: Product used for unknown indication
     Dosage: / BRAND NAME NOT SPECIFIED
     Route: 065

REACTIONS (3)
  - Hallucination [Unknown]
  - Nightmare [Unknown]
  - Headache [Unknown]
